FAERS Safety Report 6986127-9 (Version None)
Quarter: 2010Q3

REPORT INFORMATION
  Report Type: 
  Country: None (occurrence: None)
  Receive Date: 20100910
  Receipt Date: 20100826
  Transmission Date: 20110219
  Serious: Yes (Death)
  Sender: FDA-Public Use
  Company Number: AUR-APL-2010-02070

PATIENT
  Age: 47 Year
  Sex: Male

DRUGS (2)
  1. PAROXETINE HCL [Suspect]
     Dosage: 60MG, DAILY,
     Dates: start: 20050805, end: 20100318
  2. ZAPONEX [Concomitant]
     Dosage: 250MG,  ORAL
     Route: 048
     Dates: start: 20050805, end: 20100318

REACTIONS (4)
  - CONDITION AGGRAVATED [None]
  - CORONARY ARTERY DISEASE [None]
  - DRUG LEVEL INCREASED [None]
  - FALL [None]
